FAERS Safety Report 15637241 (Version 1)
Quarter: 2018Q4

REPORT INFORMATION
  Report Type: Spontaneous
  Country: US (occurrence: US)
  Receive Date: 20181120
  Receipt Date: 20181120
  Transmission Date: 20190205
  Serious: Yes (Hospitalization)
  Sender: FDA-Public Use
  Company Number: US-VERTEX PHARMACEUTICALS-2018-008503

PATIENT
  Age: 88 Year
  Sex: Female

DRUGS (13)
  1. KALYDECO [Suspect]
     Active Substance: IVACAFTOR
     Indication: CYSTIC FIBROSIS
     Dosage: 150 MG, BID
     Route: 048
     Dates: start: 20171220
  2. TAMOXIFEN [Concomitant]
     Active Substance: TAMOXIFEN
  3. FLUTICASONE. [Concomitant]
     Active Substance: FLUTICASONE
  4. AMMONIUM LACTATE. [Concomitant]
     Active Substance: AMMONIUM LACTATE
  5. CARTIA XT [Concomitant]
     Active Substance: DILTIAZEM HYDROCHLORIDE
  6. LEVOFLOXACIN. [Concomitant]
     Active Substance: LEVOFLOXACIN
  7. OMEPRAZOLE. [Concomitant]
     Active Substance: OMEPRAZOLE
  8. PRAMOXINE HC [Concomitant]
  9. SPIRIVA [Concomitant]
     Active Substance: TIOTROPIUM BROMIDE MONOHYDRATE
  10. TRIMETHOPRIM SULFAMETHOXAZOLE [Concomitant]
     Active Substance: SULFAMETHOXAZOLE\TRIMETHOPRIM
  11. ERYTHROMYCIN. [Concomitant]
     Active Substance: ERYTHROMYCIN
  12. CEPHALEXIN                         /00145501/ [Concomitant]
     Active Substance: CEPHALEXIN
  13. IPRATROPIUM [Concomitant]
     Active Substance: IPRATROPIUM

REACTIONS (1)
  - Heart rate increased [Unknown]

NARRATIVE: CASE EVENT DATE: 201811
